FAERS Safety Report 10442123 (Version 3)
Quarter: 2015Q1

REPORT INFORMATION
  Report Type: Spontaneous
  Country: US (occurrence: US)
  Receive Date: 20140909
  Receipt Date: 20150120
  Transmission Date: 20150720
  Serious: Yes (Other)
  Sender: FDA-Public Use
  Company Number: US-TEVA-506773USA

PATIENT
  Sex: Female

DRUGS (1)
  1. COPAXONE [Suspect]
     Active Substance: GLATIRAMER ACETATE
     Dosage: 20 MILLIGRAM DAILY;
     Route: 065
     Dates: start: 20130828

REACTIONS (4)
  - Urticaria [Unknown]
  - Hypersensitivity [Unknown]
  - Flushing [Unknown]
  - Palpitations [Unknown]
